FAERS Safety Report 7426909-2 (Version None)
Quarter: 2011Q2

REPORT INFORMATION
  Report Type: 
  Country: None (occurrence: None)
  Receive Date: 20110420
  Receipt Date: 20110324
  Transmission Date: 20111010
  Serious: No
  Sender: FDA-Public Use
  Company Number: US-B.I. PHARMACEUTICALS,INC./RIDGEFIELD-2011-BP-09166BP

PATIENT
  Sex: Female

DRUGS (15)
  1. SYNTHROID [Concomitant]
     Route: 048
  2. RANITIDINE [Concomitant]
     Route: 048
  3. VERAPAMIL [Concomitant]
     Route: 048
  4. HYDROCHOLOROTHIAZIDE [Concomitant]
     Route: 048
  5. SEROQUEL [Concomitant]
     Route: 048
  6. PLAVIX [Concomitant]
     Route: 048
  7. PRADAXA [Suspect]
     Indication: PALPITATIONS
     Dosage: 300 MG
     Route: 048
     Dates: start: 20110322
  8. DIGOXIN [Concomitant]
     Route: 048
  9. LIPITOR [Concomitant]
     Route: 048
  10. CYMBALTA [Concomitant]
     Route: 048
  11. VITAMINS [Concomitant]
     Route: 048
  12. LISINOPRIL [Concomitant]
     Route: 048
  13. ACETAMINOPHEN [Concomitant]
     Route: 048
  14. LIDODERM [Concomitant]
     Route: 062
  15. EFFEXOR PATCH [Concomitant]
     Route: 062

REACTIONS (4)
  - ABDOMINAL PAIN UPPER [None]
  - INSOMNIA [None]
  - DYSPEPSIA [None]
  - HEADACHE [None]
